FAERS Safety Report 4494106-9 (Version None)
Quarter: 2004Q4

REPORT INFORMATION
  Report Type: 
  Country: None (occurrence: None)
  Receive Date: 20041105
  Receipt Date: 20041025
  Transmission Date: 20050328
  Serious: Yes (Hospitalization)
  Sender: FDA-Public Use
  Company Number: DE-BRISTOL-MYERS SQUIBB COMPANY-12743878

PATIENT
  Age: 73 Year
  Sex: Male

DRUGS (3)
  1. CISPLATIN [Suspect]
     Indication: NON-SMALL CELL LUNG CANCER
     Dosage: DAYS 1 + 8 INITIAL DOSE: 07-OCT-2004
     Route: 042
     Dates: start: 20041014, end: 20041014
  2. TAXOL [Suspect]
     Indication: NON-SMALL CELL LUNG CANCER
     Dosage: DAY 1
     Route: 042
     Dates: start: 20041007, end: 20041007
  3. OMEPRAZOLE [Concomitant]
     Dates: start: 20041019

REACTIONS (2)
  - DEPRESSION [None]
  - FATIGUE [None]
